FAERS Safety Report 7376104-0 (Version None)
Quarter: 2011Q1

REPORT INFORMATION
  Report Type: 
  Country: None (occurrence: None)
  Receive Date: 20110317
  Receipt Date: 20110304
  Transmission Date: 20110831
  Serious: Yes (Hospitalization, Other)
  Sender: FDA-Public Use
  Company Number: 2011SP006919

PATIENT
  Age: 35 Year
  Sex: Female

DRUGS (1)
  1. MARVELON (DESOGESTREL/ETHINYLESTRADIOL /00570801/) [Suspect]
     Indication: ORAL CONTRACEPTION
     Dosage: 1 DF; QD; PO
     Route: 048
     Dates: start: 20100301, end: 20100718

REACTIONS (2)
  - EMBOLISM ARTERIAL [None]
  - HEMIPARESIS [None]
